FAERS Safety Report 6213924-X (Version None)
Quarter: 2009Q2

REPORT INFORMATION
  Report Type: 
  Country: None (occurrence: None)
  Receive Date: 20090601
  Receipt Date: 20090601
  Transmission Date: 20091009
  Serious: Yes (Death)
  Sender: FDA-Public Use
  Company Number: None

PATIENT
  Age: 33 Year
  Sex: Female
  Weight: 68.0396 kg

DRUGS (6)
  1. LAMICTAL [Suspect]
     Indication: AFFECTIVE DISORDER
     Dosage: 100 MG TWICE DAILY OROPHARINGEAL
     Route: 049
     Dates: start: 20070410, end: 20070625
  2. LAMICTAL [Suspect]
     Indication: BIPOLAR DISORDER
     Dosage: 100 MG TWICE DAILY OROPHARINGEAL
     Route: 049
     Dates: start: 20070410, end: 20070625
  3. LAMICTAL [Suspect]
     Indication: MAJOR DEPRESSION
     Dosage: 100 MG TWICE DAILY OROPHARINGEAL
     Route: 049
     Dates: start: 20070410, end: 20070625
  4. WELLBUTRIN [Concomitant]
  5. ABILIFY [Concomitant]
  6. LAMICTAL [Concomitant]

REACTIONS (7)
  - ASTHENIA [None]
  - COMPLETED SUICIDE [None]
  - DEPRESSIVE SYMPTOM [None]
  - HYPERSOMNIA [None]
  - INCREASED APPETITE [None]
  - SOCIAL AVOIDANT BEHAVIOUR [None]
  - SUICIDAL IDEATION [None]
